FAERS Safety Report 7450640-0 (Version None)
Quarter: 2011Q2

REPORT INFORMATION
  Report Type: 
  Country: None (occurrence: None)
  Receive Date: 20110502
  Receipt Date: 20101112
  Transmission Date: 20111010
  Serious: No
  Sender: FDA-Public Use
  Company Number: US-BAYER-201041428NA

PATIENT
  Sex: Female

DRUGS (2)
  1. YAZ [Suspect]
     Indication: CONTRACEPTION
  2. DROSPIRENONE AND ETHINYL ESTRADIOL [Suspect]
     Dosage: UNK
     Route: 048
     Dates: start: 20100101, end: 20100101

REACTIONS (15)
  - BREATH ODOUR [None]
  - ARTHRALGIA [None]
  - CRYING [None]
  - PAIN THRESHOLD DECREASED [None]
  - RASH [None]
  - MOTION SICKNESS [None]
  - HYPOAESTHESIA [None]
  - HEADACHE [None]
  - MUSCLE SPASMS [None]
  - MOOD ALTERED [None]
  - DIZZINESS [None]
  - NAUSEA [None]
  - MUSCLE TWITCHING [None]
  - IMPAIRED HEALING [None]
  - FATIGUE [None]
